FAERS Safety Report 7023966-2 (Version None)
Quarter: 2010Q4

REPORT INFORMATION
  Report Type: 
  Country: None (occurrence: None)
  Receive Date: 20101001
  Receipt Date: 20100920
  Transmission Date: 20110411
  Serious: Yes (Other)
  Sender: FDA-Public Use
  Company Number: US-ELI_LILLY_AND_COMPANY-US201009005822

PATIENT
  Sex: Female

DRUGS (1)
  1. CYMBALTA [Suspect]
     Indication: FIBROMYALGIA
     Dosage: 60 MG, UNKNOWN
     Route: 065

REACTIONS (6)
  - DYSPNOEA [None]
  - LIP SWELLING [None]
  - PAIN [None]
  - RASH [None]
  - THROAT TIGHTNESS [None]
  - URTICARIA [None]
